FAERS Safety Report 6057971-X (Version None)
Quarter: 2009Q1

REPORT INFORMATION
  Report Type: 
  Country: None (occurrence: None)
  Receive Date: 20090129
  Receipt Date: 20090127
  Transmission Date: 20090719
  Serious: Yes (Hospitalization)
  Sender: FDA-Public Use
  Company Number: US-B.I. PHARMACEUTICALS,INC./RIDGEFIELD-2009-BP-00989BP

PATIENT
  Age: 71 Year
  Sex: Female

DRUGS (10)
  1. MICARDIS HCT [Suspect]
     Indication: HYPERTENSION
     Route: 048
     Dates: start: 20060101, end: 20090101
  2. LASIX [Suspect]
     Indication: HYPERTENSION
     Dates: start: 20080101, end: 20090101
  3. BYSTOLIC [Suspect]
     Indication: HYPERTENSION
     Dates: start: 20080101, end: 20090101
  4. SYNTHROID [Concomitant]
     Indication: HYPOTHYROIDISM
  5. VITAMIN D [Concomitant]
  6. CELEXA [Concomitant]
     Indication: NERVOUSNESS
  7. IRON [Concomitant]
     Indication: ANAEMIA
  8. PREDNISONE [Concomitant]
     Indication: ARTHRITIS
  9. PREVACID [Concomitant]
     Indication: ABDOMINAL DISCOMFORT
  10. VYTORIN [Concomitant]
     Indication: BLOOD CHOLESTEROL

REACTIONS (2)
  - HYPOTENSION [None]
  - LOSS OF CONSCIOUSNESS [None]
